FAERS Safety Report 9556966 (Version 2)
Quarter: 2013Q4

REPORT INFORMATION
  Report Type: Spontaneous
  Country: US (occurrence: US)
  Receive Date: 20130926
  Receipt Date: 20131018
  Transmission Date: 20140711
  Serious: No
  Sender: FDA-Public Use
  Company Number: US-PFIZER INC-2013275750

PATIENT
  Sex: Female

DRUGS (1)
  1. PFIZERPEN [Suspect]
     Dosage: 5000000 IU, UNK
     Route: 041

REACTIONS (1)
  - Injection site pain [Recovered/Resolved]
